FAERS Safety Report 23230009 (Version 2)
Quarter: 2023Q4

REPORT INFORMATION
  Report Type: Spontaneous
  Country: US (occurrence: US)
  Receive Date: 20231127
  Receipt Date: 20231215
  Transmission Date: 20240109
  Serious: Yes (Hospitalization)
  Sender: FDA-Public Use
  Company Number: US-BRISTOL-MYERS SQUIBB COMPANY-2023-169686

PATIENT
  Age: 80 Year
  Sex: Male
  Weight: 70.31 kg

DRUGS (2)
  1. REVLIMID [Suspect]
     Active Substance: LENALIDOMIDE
     Indication: Malignant melanoma
     Dosage: 3 WKS ON, 1WK OFF
     Route: 048
  2. REVLIMID [Suspect]
     Active Substance: LENALIDOMIDE
     Dosage: 3 WKS ON, 1WK OFF
     Route: 048

REACTIONS (6)
  - Asthenia [Recovering/Resolving]
  - Gait disturbance [Recovered/Resolved]
  - Off label use [Unknown]
  - Fatigue [Unknown]
  - Dyspnoea [Unknown]
  - Full blood count decreased [Unknown]
